FAERS Safety Report 15553974 (Version 4)
Quarter: 2018Q4

REPORT INFORMATION
  Report Type: Spontaneous
  Country: US (occurrence: US)
  Receive Date: 20181026
  Receipt Date: 20181126
  Transmission Date: 20190205
  Serious: No
  Sender: FDA-Public Use
  Company Number: US-JNJFOC-20181019917

PATIENT
  Sex: Male
  Weight: 140.62 kg

DRUGS (2)
  1. DURAGESIC [Suspect]
     Active Substance: FENTANYL
     Indication: PAIN
     Route: 062
     Dates: start: 2017, end: 20180923
  2. DURAGESIC [Suspect]
     Active Substance: FENTANYL
     Indication: PAIN
     Route: 062
     Dates: start: 20180924

REACTIONS (13)
  - Rash macular [Not Recovered/Not Resolved]
  - Influenza [Unknown]
  - Headache [Not Recovered/Not Resolved]
  - Product administered at inappropriate site [Unknown]
  - Insomnia [Not Recovered/Not Resolved]
  - Onychomycosis [Unknown]
  - Withdrawal syndrome [Unknown]
  - Drug tolerance [Not Recovered/Not Resolved]
  - Off label use [Unknown]
  - Tinnitus [Not Recovered/Not Resolved]
  - Abdominal rigidity [Not Recovered/Not Resolved]
  - Dry mouth [Not Recovered/Not Resolved]
  - Drug ineffective [Unknown]

NARRATIVE: CASE EVENT DATE: 2017
